FAERS Safety Report 9448360 (Version 2)
Quarter: 2013Q3

REPORT INFORMATION
  Report Type: Spontaneous
  Country: FR (occurrence: FR)
  Receive Date: 20130808
  Receipt Date: 20130927
  Transmission Date: 20140515
  Serious: Yes (Hospitalization)
  Sender: FDA-Public Use
  Company Number: FR-PFIZER INC-2013229515

PATIENT
  Age: 65 Year
  Sex: Female

DRUGS (8)
  1. CORDARONE [Suspect]
     Dosage: UNK
     Route: 048
     Dates: start: 20130713
  2. PREVISCAN [Suspect]
     Indication: ANTICOAGULANT THERAPY
     Dosage: UNK
     Route: 048
     Dates: start: 2013, end: 20130712
  3. PREVISCAN [Suspect]
     Dosage: UNK
     Route: 048
     Dates: start: 20130718
  4. HEPARIN ^PANPHARMA^ [Suspect]
     Indication: ANTICOAGULANT THERAPY
     Dosage: UNK
     Route: 042
     Dates: start: 20130712, end: 20130725
  5. GENTAMICIN SULFATE [Suspect]
     Indication: ENDOCARDITIS
     Dosage: UNK
     Route: 042
     Dates: start: 20130712, end: 20130717
  6. CLAMOXYL [Suspect]
     Indication: ENDOCARDITIS
     Dosage: 1G EVERY FOUR HOURS
     Route: 042
     Dates: start: 20130712, end: 20130717
  7. ATACAND [Concomitant]
     Dosage: UNK
  8. CARDENSIEL [Concomitant]
     Dosage: UNK

REACTIONS (1)
  - Vascular purpura [Recovering/Resolving]
